FAERS Safety Report 20431215 (Version 1)
Quarter: 2022Q1

REPORT INFORMATION
  Report Type: Spontaneous
  Country: US (occurrence: US)
  Receive Date: 20220204
  Receipt Date: 20220204
  Transmission Date: 20220423
  Serious: No
  Sender: FDA-Public Use
  Company Number: US-PERRIGO-21US004137

PATIENT
  Age: 72 Year
  Sex: Female
  Weight: 54.422 kg

DRUGS (4)
  1. TRETINOIN [Suspect]
     Active Substance: TRETINOIN
     Indication: Skin wrinkling
     Dosage: PEARL-SIZED AMOUNT, QOD
     Route: 061
     Dates: start: 20210310
  2. EMOLLIENTS [Suspect]
     Active Substance: EMOLLIENTS
     Indication: Dry skin prophylaxis
     Dosage: PEARL-SIZED AMOUNT, QOD
     Route: 061
     Dates: start: 20210310, end: 20210316
  3. LOSARTAN [Concomitant]
     Active Substance: LOSARTAN
     Indication: Hypertension
     Dosage: UNK
     Route: 065
  4. LIPITOR [Concomitant]
     Active Substance: ATORVASTATIN CALCIUM
     Indication: Blood cholesterol increased
     Dosage: UNK
     Route: 065

REACTIONS (3)
  - Application site exfoliation [Recovered/Resolved]
  - Drug ineffective for unapproved indication [Unknown]
  - Wrong technique in product usage process [Unknown]

NARRATIVE: CASE EVENT DATE: 20210310
